FAERS Safety Report 16532080 (Version 1)
Quarter: 2019Q3

REPORT INFORMATION
  Report Type: Spontaneous
  Country: IT (occurrence: IT)
  Receive Date: 20190704
  Receipt Date: 20190704
  Transmission Date: 20191004
  Serious: Yes (Other)
  Sender: FDA-Public Use
  Company Number: IT-HIKMA PHARMACEUTICALS USA INC.-IT-H14001-19-45891

PATIENT
  Age: 74 Year
  Sex: Male
  Weight: 88 kg

DRUGS (4)
  1. ACCOFIL 30 MU/0.5 ML SOLUTION FOR INJECTION OR INFUSION IN PRE-FILLED [Concomitant]
     Indication: COLONY STIMULATING FACTOR THERAPY
     Route: 058
  2. DOXORUBICIN HYDROCHLORIDE. [Suspect]
     Active Substance: DOXORUBICIN HYDROCHLORIDE
     Indication: RHABDOMYOSARCOMA
     Dosage: CYCLICAL
     Dates: start: 20190306, end: 20190306
  3. VINCRISTINE [Suspect]
     Active Substance: VINCRISTINE
     Indication: RHABDOMYOSARCOMA
     Dosage: IN TOTAL
     Route: 042
     Dates: start: 20190306, end: 20190306
  4. CYCLOPHOSPHAMIDE. [Suspect]
     Active Substance: CYCLOPHOSPHAMIDE
     Indication: RHABDOMYOSARCOMA
     Dosage: CYCLICAL
     Route: 042
     Dates: start: 20190306, end: 20190306

REACTIONS (5)
  - Neutropenia [Recovering/Resolving]
  - Mucosal inflammation [Recovering/Resolving]
  - Gingival hypertrophy [Recovering/Resolving]
  - Dysphagia [Recovering/Resolving]
  - Thrombocytopenia [Recovering/Resolving]

NARRATIVE: CASE EVENT DATE: 20190314
